FAERS Safety Report 11243149 (Version 1)
Quarter: 2015Q3

REPORT INFORMATION
  Report Type: Spontaneous
  Country: US (occurrence: US)
  Receive Date: 20150707
  Receipt Date: 20150707
  Transmission Date: 20151125
  Serious: No
  Sender: FDA-Public Use
  Company Number: US-BIOGENIDEC-2015BI092938

PATIENT
  Sex: Female

DRUGS (1)
  1. AVONEX [Suspect]
     Active Substance: INTERFERON BETA-1A
     Indication: MULTIPLE SCLEROSIS
     Route: 030
     Dates: start: 2006

REACTIONS (6)
  - Limb discomfort [Recovered/Resolved]
  - Application site pain [Recovered/Resolved]
  - Feeling cold [Recovered/Resolved]
  - Application site reaction [Recovered/Resolved]
  - Tremor [Recovered/Resolved]
  - Alopecia [Recovered/Resolved]
